FAERS Safety Report 10989209 (Version 2)
Quarter: 2015Q2

REPORT INFORMATION
  Report Type: Spontaneous
  Country: US (occurrence: US)
  Receive Date: 20150406
  Receipt Date: 20150606
  Transmission Date: 20150821
  Serious: Yes (Hospitalization)
  Sender: FDA-Public Use
  Company Number: US-AUROBINDO-AUR-APL-2015-02902

PATIENT
  Age: 74 Year
  Sex: Male
  Weight: 80 kg

DRUGS (10)
  1. SUTENT [Suspect]
     Active Substance: SUNITINIB MALATE
     Indication: RENAL CANCER
     Dosage: 25 MG, DAILY
     Route: 048
     Dates: start: 2014
  2. CALCITRIOL. [Suspect]
     Active Substance: CALCITRIOL
     Indication: BLOOD CHOLESTEROL
     Dosage: 1 DF, DAILY
     Route: 065
     Dates: start: 2015
  3. HYDROCHLOROTHIAZIDE TABLETS USP 25 MG [Suspect]
     Active Substance: HYDROCHLOROTHIAZIDE
     Indication: DIURETIC THERAPY
     Dosage: 1 DF, DAILY
     Route: 065
     Dates: start: 2010
  4. ASPIRIN. [Suspect]
     Active Substance: ASPIRIN
     Indication: PRODUCT USED FOR UNKNOWN INDICATION
     Dosage: 81 MG, DAILY
     Route: 048
  5. TAMSULOSIN [Suspect]
     Active Substance: TAMSULOSIN
     Indication: PRODUCT USED FOR UNKNOWN INDICATION
     Dosage: 4 MG, DAILY
     Route: 065
     Dates: start: 2010
  6. TRAMADOL HYDROCHLORIDE TABLETS USP 50 MG [Suspect]
     Active Substance: TRAMADOL HYDROCHLORIDE
     Indication: PAIN
     Dosage: 50 MG, AS NECESSARY (AS NEEDED)
     Route: 065
     Dates: start: 2013
  7. SUTENT [Suspect]
     Active Substance: SUNITINIB MALATE
     Dosage: 12.5 MG, EVERY OTHER DAY
     Route: 048
     Dates: start: 2014
  8. ROPINIROLE. [Suspect]
     Active Substance: ROPINIROLE
     Indication: RESTLESS LEGS SYNDROME
     Dosage: 0.5 DF, AS NECESSARY (ONLY WHEN NEEDED)
     Route: 065
     Dates: start: 2013
  9. FINASTERIDE TABLETS USP 5MG [Suspect]
     Active Substance: FINASTERIDE
     Indication: BLOOD CHOLESTEROL
     Dosage: 5 MG, DAILY
     Route: 065
     Dates: start: 2010
  10. LISINOPRIL TABLETS USP 2.5 MG [Suspect]
     Active Substance: LISINOPRIL
     Indication: BLOOD PRESSURE
     Dosage: 1 DF, DAILY
     Route: 065
     Dates: start: 2010

REACTIONS (7)
  - Aphasia [Unknown]
  - VIIth nerve paralysis [Unknown]
  - Speech disorder [Unknown]
  - Balance disorder [Unknown]
  - Confusional state [Unknown]
  - Haemorrhagic stroke [Recovered/Resolved with Sequelae]
  - Hypokinesia [Unknown]

NARRATIVE: CASE EVENT DATE: 20150327
